FAERS Safety Report 13643950 (Version 1)
Quarter: 2017Q2

REPORT INFORMATION
  Report Type: Report from Study
  Country: US (occurrence: US)
  Receive Date: 20170612
  Receipt Date: 20170612
  Transmission Date: 20170830
  Serious: Yes (Hospitalization)
  Sender: FDA-Public Use
  Company Number: US-PFIZER INC-2017222056

PATIENT
  Age: 70 Year
  Sex: Female

DRUGS (2)
  1. METHOTREXATE SODIUM. [Suspect]
     Active Substance: METHOTREXATE SODIUM
  2. ENBREL [Suspect]
     Active Substance: ETANERCEPT
     Indication: RHEUMATOID ARTHRITIS
     Dosage: 50 MG, QWK
     Dates: end: 201705

REACTIONS (12)
  - Rhinovirus infection [Recovering/Resolving]
  - Sinus congestion [Unknown]
  - Injection site erythema [Unknown]
  - Asthma [Unknown]
  - Injection site pain [Unknown]
  - Lung disorder [Unknown]
  - Upper respiratory tract infection [Unknown]
  - Malaise [Unknown]
  - Cough [Not Recovered/Not Resolved]
  - Vomiting [Recovering/Resolving]
  - Dehydration [Recovering/Resolving]
  - Sinusitis [Unknown]

NARRATIVE: CASE EVENT DATE: 201705
